FAERS Safety Report 26005969 (Version 1)
Quarter: 2025Q4

REPORT INFORMATION
  Report Type: Spontaneous
  Country: US (occurrence: None)
  Receive Date: 20251106
  Receipt Date: 20251106
  Transmission Date: 20260117
  Serious: Yes (Hospitalization)
  Sender: FDA-CTU
  Company Number: None

PATIENT
  Age: 60 Year
  Sex: Male
  Weight: 78 kg

DRUGS (1)
  1. PONATINIB [Suspect]
     Active Substance: PONATINIB
     Dates: end: 20251102

REACTIONS (7)
  - Ischaemic stroke [None]
  - Vertebrobasilar artery stenosis [None]
  - Cerebral artery occlusion [None]
  - Sigmoid sinus thrombosis [None]
  - Transverse sinus thrombosis [None]
  - Brain oedema [None]
  - Cerebral arteriosclerosis [None]

NARRATIVE: CASE EVENT DATE: 20251104
